FAERS Safety Report 21425760 (Version 1)
Quarter: 2022Q4

REPORT INFORMATION
  Report Type: Spontaneous
  Country: SI (occurrence: SI)
  Receive Date: 20221008
  Receipt Date: 20221008
  Transmission Date: 20230113
  Serious: Yes (Other)
  Sender: FDA-Public Use
  Company Number: None

PATIENT
  Sex: Male

DRUGS (7)
  1. IMATINIB [Suspect]
     Active Substance: IMATINIB
     Indication: Chronic myeloid leukaemia
     Dosage: 300 UNK
     Dates: start: 20120215
  2. IMATINIB [Suspect]
     Active Substance: IMATINIB
     Dosage: 400 UNK
     Dates: start: 20200128
  3. IMATINIB [Suspect]
     Active Substance: IMATINIB
     Dosage: 400 MG, QD
     Dates: end: 20100623
  4. IMATINIB [Suspect]
     Active Substance: IMATINIB
     Dosage: 800 MG, QD
     Dates: start: 20100623
  5. IMATINIB [Suspect]
     Active Substance: IMATINIB
     Dosage: 400 UNK
     Dates: start: 20200805
  6. NILOTINIB [Suspect]
     Active Substance: NILOTINIB
     Indication: Chronic myeloid leukaemia
     Dosage: 2 X 300 MG, QD
     Dates: start: 20120523, end: 20190515
  7. NILOTINIB [Suspect]
     Active Substance: NILOTINIB
     Dosage: 400 UNK
     Dates: start: 20200128

REACTIONS (6)
  - Philadelphia chromosome positive [Recovered/Resolved]
  - Rash [Recovered/Resolved]
  - Dyspepsia [Recovered/Resolved]
  - Therapeutic response decreased [Recovered/Resolved]
  - Therapeutic response decreased [Recovered/Resolved]
  - Gynaecomastia [Recovered/Resolved]

NARRATIVE: CASE EVENT DATE: 20100623
